FAERS Safety Report 8499086-7 (Version None)
Quarter: 2012Q2

REPORT INFORMATION
  Report Type: 
  Country: None (occurrence: None)
  Receive Date: 20120405
  Receipt Date: 20100318
  Transmission Date: 20120825
  Serious: Yes (Hospitalization)
  Sender: FDA-Public Use
  Company Number: PHEH2010US03199

PATIENT
  Sex: Female

DRUGS (1)
  1. RECLAST [Suspect]
     Indication: GASTROINTESTINAL EXAMINATION
     Dosage: UNK, INFUSION
     Dates: start: 20091201

REACTIONS (2)
  - BLOOD CREATININE INCREASED [None]
  - RENAL FAILURE [None]
